FAERS Safety Report 7517976-6 (Version None)
Quarter: 2011Q2

REPORT INFORMATION
  Report Type: 
  Country: None (occurrence: None)
  Receive Date: 20110531
  Receipt Date: 20110531
  Transmission Date: 20111010
  Serious: Yes (Other)
  Sender: FDA-Public Use
  Company Number: None

PATIENT
  Age: 45 Year
  Sex: Female
  Weight: 77.1115 kg

DRUGS (2)
  1. VENLAFAXINE HCL EXTENDED-RELEASE [Suspect]
     Indication: DEPRESSION
     Dosage: 150 MG ONE CAP. DAILY PO
     Route: 048
     Dates: start: 20110524, end: 20110527
  2. VENLAFAXINE HCL EXTENDED-RELEASE [Suspect]
     Indication: ANXIETY
     Dosage: 150 MG ONE CAP. DAILY PO
     Route: 048
     Dates: start: 20110524, end: 20110527

REACTIONS (5)
  - HYPERSOMNIA [None]
  - DRUG INEFFECTIVE [None]
  - PRODUCT SUBSTITUTION ISSUE [None]
  - YAWNING [None]
  - LETHARGY [None]
